FAERS Safety Report 9837538 (Version 1)
Quarter: 2014Q1

REPORT INFORMATION
  Report Type: Spontaneous
  Country: US (occurrence: None)
  Receive Date: 20140117
  Receipt Date: 20140117
  Transmission Date: 20141002
  Serious: Yes (Disabling)
  Sender: FDA-Public Use
  Company Number: None

PATIENT
  Age: 48 Year
  Sex: Male
  Weight: 89.36 kg

DRUGS (1)
  1. LEVAQUIN [Suspect]
     Indication: DIVERTICULITIS
     Dosage: 1 PILL  SINGLE INSTANCE TAKEN BY MOUTH
     Route: 048
     Dates: start: 20140108, end: 20140108

REACTIONS (3)
  - Tendon pain [None]
  - Muscular weakness [None]
  - Back pain [None]
